FAERS Safety Report 6869963 (Version 3)
Quarter: 2013Q1

REPORT INFORMATION
  Report Type: Spontaneous
  Country: CA (occurrence: CA)
  Receive Date: 20081230
  Receipt Date: 20130311
  Transmission Date: 20140127
  Serious: Yes (Other)
  Sender: FDA-Public Use
  Company Number: CA-PFIZER INC-2008154037

PATIENT
  Age: 37 Year
  Sex: Male

DRUGS (1)
  1. CHAMPIX [Suspect]
     Route: 048
     Dates: start: 200802

REACTIONS (5)
  - Suicidal ideation [Unknown]
  - Aggression [Unknown]
  - Physical assault [Unknown]
  - Hypertension [Unknown]
  - Fall [Unknown]
